FAERS Safety Report 10760643 (Version 2)
Quarter: 2015Q1

REPORT INFORMATION
  Report Type: Spontaneous
  Country: US (occurrence: None)
  Receive Date: 20150202
  Receipt Date: 20150226
  Transmission Date: 20150721
  Serious: Yes (Death, Hospitalization, Other)
  Sender: FDA-Public Use
  Company Number: 2015-000155

PATIENT
  Sex: Male

DRUGS (13)
  1. LANTUS [Concomitant]
     Active Substance: INSULIN GLARGINE
  2. METOLAZONE. [Concomitant]
     Active Substance: METOLAZONE
  3. CELLCEPT [Concomitant]
     Active Substance: MYCOPHENOLATE MOFETIL\MYCOPHENOLATE MOFETIL HYDROCHLORIDE
  4. INSULIN HUMAN [Concomitant]
     Active Substance: INSULIN HUMAN
  5. CALCIUM [Concomitant]
     Active Substance: CALCIUM
  6. ACTONEL [Suspect]
     Active Substance: RISEDRONATE SODIUM
     Indication: OSTEOPOROSIS
     Route: 048
     Dates: start: 2005, end: 2010
  7. ACTONEL [Suspect]
     Active Substance: RISEDRONATE SODIUM
     Route: 048
  8. FISH OIL [Concomitant]
     Active Substance: FISH OIL
  9. AVANDIA (ROSIGLITAZONE MALEATE) [Concomitant]
  10. PRECOSE (ACARBOSE) [Concomitant]
  11. VERAPAMIL [Concomitant]
     Active Substance: VERAPAMIL HYDROCHLORIDE
  12. STARLIX (NATEGLINIDE) [Concomitant]
  13. VITAMIN D (COLECALCIFEROL) [Concomitant]

REACTIONS (9)
  - Atrial flutter [None]
  - Femur fracture [None]
  - Oesophageal carcinoma [None]
  - Arthralgia [None]
  - Death [None]
  - Fall [None]
  - Hip fracture [None]
  - Presyncope [None]
  - Pneumonia aspiration [None]

NARRATIVE: CASE EVENT DATE: 200807
